FAERS Safety Report 24242394 (Version 1)
Quarter: 2024Q3

REPORT INFORMATION
  Report Type: Spontaneous
  Country: US (occurrence: US)
  Receive Date: 20240823
  Receipt Date: 20240823
  Transmission Date: 20241016
  Serious: No
  Sender: NOVARTIS
  Company Number: US-002147023-NVSC2024US170825

PATIENT
  Age: 78 Year
  Sex: Male
  Weight: 54.43 kg

DRUGS (1)
  1. VALSARTAN [Suspect]
     Active Substance: VALSARTAN
     Indication: Hypertension
     Dosage: UNK
     Route: 065

REACTIONS (4)
  - Illness [Unknown]
  - Weight decreased [Unknown]
  - Chest discomfort [Unknown]
  - Drug ineffective [Unknown]
